FAERS Safety Report 11802532 (Version 1)
Quarter: 2015Q4

REPORT INFORMATION
  Report Type: Report from Study
  Country: US (occurrence: US)
  Receive Date: 20151204
  Receipt Date: 20151204
  Transmission Date: 20160305
  Serious: Yes (Life-Threatening, Hospitalization, Other)
  Sender: FDA-Public Use
  Company Number: US-ABBVIE-15P-163-1507746-00

PATIENT
  Age: 58 Year
  Sex: Male
  Weight: 119 kg

DRUGS (14)
  1. DOXAZOSIN [Concomitant]
     Active Substance: DOXAZOSIN\DOXAZOSIN MESYLATE
     Indication: HYPERTENSION
     Route: 048
     Dates: start: 201502
  2. TORSEMIDE. [Concomitant]
     Active Substance: TORSEMIDE
     Indication: HYPERTENSION
     Route: 048
     Dates: start: 20151111
  3. METFORMIN [Concomitant]
     Active Substance: METFORMIN HYDROCHLORIDE
     Indication: TYPE 2 DIABETES MELLITUS
     Route: 048
     Dates: start: 2011
  4. GLIPIZIDE. [Concomitant]
     Active Substance: GLIPIZIDE
     Indication: TYPE 2 DIABETES MELLITUS
     Route: 048
     Dates: start: 2012
  5. LISINOPRIL. [Concomitant]
     Active Substance: LISINOPRIL
     Indication: HYPERTENSION
     Route: 048
     Dates: start: 2014
  6. FUROSEMIDE. [Concomitant]
     Active Substance: FUROSEMIDE
     Indication: OEDEMA PERIPHERAL
     Route: 048
     Dates: start: 2014, end: 20151012
  7. LEVOFLOXACIN. [Concomitant]
     Active Substance: LEVOFLOXACIN
     Indication: LOCALISED INFECTION
     Route: 048
     Dates: start: 20150916, end: 20150925
  8. TORSEMIDE. [Concomitant]
     Active Substance: TORSEMIDE
     Indication: OEDEMA PERIPHERAL
     Route: 048
     Dates: start: 20151012, end: 20151110
  9. TORSEMIDE. [Concomitant]
     Active Substance: TORSEMIDE
     Indication: WEIGHT CONTROL
  10. METOLAZONE. [Concomitant]
     Active Substance: METOLAZONE
     Indication: OEDEMA PERIPHERAL
     Route: 048
     Dates: start: 20151006, end: 20151110
  11. PROBIOTIC ACIDOPHILUS [Concomitant]
     Active Substance: LACTOBACILLUS ACIDOPHILUS
     Indication: GASTRIC DISORDER
     Route: 048
     Dates: start: 201509
  12. POTASSIUM CHLORIDE. [Concomitant]
     Active Substance: POTASSIUM CHLORIDE
     Indication: PROPHYLAXIS
     Route: 048
     Dates: start: 20151012
  13. METOLAZONE. [Concomitant]
     Active Substance: METOLAZONE
     Route: 048
     Dates: start: 20151111
  14. ATRASENTAN [Suspect]
     Active Substance: ATRASENTAN
     Indication: DIABETIC NEPHROPATHY
     Route: 048
     Dates: start: 20151027

REACTIONS (1)
  - Anaemia [Not Recovered/Not Resolved]

NARRATIVE: CASE EVENT DATE: 20151123
